FAERS Safety Report 10412510 (Version 1)
Quarter: 2014Q3

REPORT INFORMATION
  Report Type: Spontaneous
  Country: CM (occurrence: CM)
  Receive Date: 20140827
  Receipt Date: 20140827
  Transmission Date: 20150326
  Serious: Yes (Hospitalization)
  Sender: FDA-Public Use
  Company Number: CM-SA-2014SA113509

PATIENT
  Age: 30 Year
  Sex: Male
  Weight: 65 kg

DRUGS (8)
  1. COTRIMOXAZOLE [Concomitant]
     Active Substance: SULFAMETHOXAZOLE\TRIMETHOPRIM
     Dates: start: 20130119
  2. RIFAMPICIN [Suspect]
     Active Substance: RIFAMPIN
     Indication: MYCOBACTERIUM ULCERANS INFECTION
     Route: 048
     Dates: start: 20130109, end: 20130303
  3. LAMIVUDINE. [Suspect]
     Active Substance: LAMIVUDINE
     Indication: HIV INFECTION
     Route: 065
     Dates: start: 20130119, end: 201303
  4. PREDNISOLONE. [Concomitant]
     Active Substance: PREDNISOLONE
     Indication: DRUG HYPERSENSITIVITY
     Route: 048
     Dates: start: 201301, end: 201301
  5. CLARITHROMYCIN. [Suspect]
     Active Substance: CLARITHROMYCIN
     Indication: MYCOBACTERIUM ULCERANS INFECTION
     Route: 065
     Dates: start: 201301, end: 20130303
  6. ZIDOVUDINE. [Suspect]
     Active Substance: ZIDOVUDINE
     Indication: HIV INFECTION
     Route: 065
     Dates: start: 20130119, end: 201303
  7. STREPTOMYCIN [Suspect]
     Active Substance: STREPTOMYCIN\STREPTOMYCIN SULFATE
     Indication: MYCOBACTERIUM ULCERANS INFECTION
     Route: 030
     Dates: start: 20130109
  8. EFAVIRENZ [Suspect]
     Active Substance: EFAVIRENZ
     Indication: HIV INFECTION
     Route: 065
     Dates: start: 20130119, end: 201303

REACTIONS (7)
  - Paradoxical drug reaction [Recovered/Resolved]
  - Inflammation [Recovered/Resolved]
  - Oedema [Recovered/Resolved]
  - Necrosis [Recovered/Resolved]
  - Skin lesion [Recovered/Resolved]
  - Granuloma [Recovered/Resolved]
  - Skin ulcer [Recovered/Resolved]
